FAERS Safety Report 4520635-5 (Version None)
Quarter: 2004Q4

REPORT INFORMATION
  Report Type: 
  Country: None (occurrence: None)
  Receive Date: 20041203
  Receipt Date: 20041123
  Transmission Date: 20050328
  Serious: Yes (Other)
  Sender: FDA-Public Use
  Company Number: 2004-BP-12380BP

PATIENT
  Sex: Female

DRUGS (1)
  1. ATROVENT [Suspect]
     Indication: RESPIRATORY TRACT CONGESTION
     Dosage: (18 MCG), IH
     Route: 055
     Dates: start: 19970101, end: 19970101

REACTIONS (1)
  - BREAST CANCER [None]
